FAERS Safety Report 9435619 (Version 1)
Quarter: 2013Q3

REPORT INFORMATION
  Report Type: Spontaneous
  Country: US (occurrence: None)
  Receive Date: 20130730
  Receipt Date: 20130730
  Transmission Date: 20140515
  Serious: Yes (Other)
  Sender: FDA-Public Use
  Company Number: 2013P1012871

PATIENT
  Age: 83 Year
  Sex: Male

DRUGS (11)
  1. HEPARIN [Suspect]
     Dosage: 5000 U; X1
  2. ASPIRIN (ACETYLSALICYLIC ACID) [Suspect]
  3. FLUTICASONE PROPIONATE [Concomitant]
  4. FUROSEMIDE [Concomitant]
  5. HYDRALAZINE HYDROCHLORIDE [Concomitant]
  6. ISOSORBIDE DINITRATE [Concomitant]
  7. LEVOTHYROXINE SODIUM [Concomitant]
  8. METOPROLOL SUCCINATE [Concomitant]
  9. SIMVASTATIN [Concomitant]
  10. TIOTROPIUM BROMIDE [Concomitant]
  11. COUMADIN (WARFARIN SODIUM) [Concomitant]

REACTIONS (6)
  - Dermatitis bullous [None]
  - International normalised ratio decreased [None]
  - Blood creatinine increased [None]
  - Haemoglobin decreased [None]
  - Activated partial thromboplastin time prolonged [None]
  - Renal impairment [None]
